FAERS Safety Report 17555580 (Version 2)
Quarter: 2020Q3

REPORT INFORMATION
  Report Type: Report from Study
  Country: BR (occurrence: BR)
  Receive Date: 20200318
  Receipt Date: 20200429
  Transmission Date: 20201104
  Serious: Yes (Other)
  Sender: FDA-Public Use
  Company Number: NVSC2020BR074723

PATIENT
  Age: 64 Year
  Sex: Female

DRUGS (4)
  1. TRAVATAN [Suspect]
     Active Substance: TRAVOPROST
     Indication: PRODUCT USED FOR UNKNOWN INDICATION
     Dosage: UNK
     Route: 065
  2. DUO TRAVATAN [Suspect]
     Active Substance: TIMOLOL MALEATE\TRAVOPROST
     Indication: GLAUCOMA
     Dosage: UNK
     Route: 065
     Dates: start: 2013, end: 201912
  3. GLAUCOTRAT [Concomitant]
     Active Substance: TIMOLOL MALEATE
     Indication: PRODUCT USED FOR UNKNOWN INDICATION
     Dosage: UNK
     Route: 065
  4. TIMOLOL MALEATE. [Suspect]
     Active Substance: TIMOLOL MALEATE
     Indication: PRODUCT USED FOR UNKNOWN INDICATION
     Dosage: UNK
     Route: 065
     Dates: start: 2012, end: 2013

REACTIONS (5)
  - Diabetes mellitus [Not Recovered/Not Resolved]
  - Drug ineffective [Unknown]
  - Fear [Recovered/Resolved]
  - Glaucoma [Not Recovered/Not Resolved]
  - Drug dependence [Unknown]

NARRATIVE: CASE EVENT DATE: 20200305
